FAERS Safety Report 7176684-4 (Version None)
Quarter: 2010Q4

REPORT INFORMATION
  Report Type: 
  Country: None (occurrence: None)
  Receive Date: 20101220
  Receipt Date: 20101214
  Transmission Date: 20110411
  Serious: Yes (Congenital Anomaly)
  Sender: FDA-Public Use
  Company Number: AU-SANOFI-AVENTIS-2010SA075538

PATIENT

DRUGS (2)
  1. INDAPAMIDE [Suspect]
     Route: 064
  2. PERINDOPRIL ERBUMINE [Suspect]
     Route: 064

REACTIONS (2)
  - CONGENITAL GENITAL MALFORMATION [None]
  - DRUG EXPOSURE DURING PREGNANCY [None]
